FAERS Safety Report 5927902-9 (Version None)
Quarter: 2008Q4

REPORT INFORMATION
  Report Type: 
  Country: None (occurrence: None)
  Receive Date: 20081021
  Receipt Date: 20081007
  Transmission Date: 20090506
  Serious: Yes (Death)
  Sender: FDA-Public Use
  Company Number: 2008SP002125

PATIENT

DRUGS (1)
  1. XOPENEX [Suspect]
     Dosage: 1.25 MG/3ML; INHALATION
     Route: 055

REACTIONS (1)
  - FEELING ABNORMAL [None]
